FAERS Safety Report 7655444-1 (Version None)
Quarter: 2011Q3

REPORT INFORMATION
  Report Type: 
  Country: None (occurrence: None)
  Receive Date: 20110729
  Receipt Date: 20110713
  Transmission Date: 20111222
  Serious: Yes (Hospitalization)
  Sender: FDA-Public Use
  Company Number: 2011MA009072

PATIENT
  Age: 52 Year
  Sex: Female

DRUGS (1)
  1. CITALOPRAM HYDROBROMIDE [Suspect]
     Indication: DEPRESSION
     Dosage: 40 MG;QD;PO
     Route: 048
     Dates: start: 20091001, end: 20110408

REACTIONS (4)
  - ABDOMINAL PAIN [None]
  - VOMITING [None]
  - HEPATITIS [None]
  - CHEST PAIN [None]
